FAERS Safety Report 7869373-1 (Version None)
Quarter: 2011Q4

REPORT INFORMATION
  Report Type: 
  Country: None (occurrence: None)
  Receive Date: 20111028
  Receipt Date: 20111028
  Transmission Date: 20120403
  Serious: Yes (Other)
  Sender: FDA-Public Use
  Company Number: None

PATIENT
  Sex: Male
  Weight: 124.8 kg

DRUGS (5)
  1. ALTACE [Concomitant]
  2. PRADAXA [Concomitant]
  3. CLOPIDOGREL [Suspect]
     Indication: ANTIPLATELET THERAPY
     Dosage: 75 MG. QD
     Dates: start: 20100703
  4. LIPITOR [Concomitant]
  5. TOPROL-XL [Concomitant]

REACTIONS (1)
  - ATRIAL FIBRILLATION [None]
